FAERS Safety Report 7041610-5 (Version None)
Quarter: 2010Q4

REPORT INFORMATION
  Report Type: 
  Country: None (occurrence: None)
  Receive Date: 20101013
  Receipt Date: 20090915
  Transmission Date: 20110411
  Serious: No
  Sender: FDA-Public Use
  Company Number: US-ASTRAZENECA-2009SE13804

PATIENT
  Sex: Female
  Weight: 61.2 kg

DRUGS (7)
  1. SYMBICORT [Suspect]
     Indication: ASTHMA
     Route: 055
     Dates: start: 20090101
  2. VYTORIN [Concomitant]
  3. ALTACE [Concomitant]
  4. HYDROCHLOROTHIAZIDE [Concomitant]
  5. PANTOPRAZOLE [Concomitant]
  6. METFORMIN [Concomitant]
  7. ASPIRIN [Concomitant]

REACTIONS (2)
  - DYSPHONIA [None]
  - PHARYNGEAL ERYTHEMA [None]
